FAERS Safety Report 15916730 (Version 3)
Quarter: 2019Q2

REPORT INFORMATION
  Report Type: Spontaneous
  Country: US (occurrence: US)
  Receive Date: 20190205
  Receipt Date: 20190428
  Transmission Date: 20190711
  Serious: No
  Sender: FDA-Public Use
  Company Number: US-BRISTOL-MYERS SQUIBB COMPANY-BMS-2019-011031

PATIENT
  Sex: Female
  Weight: 68.93 kg

DRUGS (1)
  1. ORENCIA [Suspect]
     Active Substance: ABATACEPT
     Indication: RHEUMATOID ARTHRITIS
     Dosage: 125 MG, QWK
     Route: 058
     Dates: start: 201901

REACTIONS (6)
  - Adverse event [Unknown]
  - Arthralgia [Unknown]
  - Needle issue [Unknown]
  - Lung disorder [Unknown]
  - Viral infection [Unknown]
  - Dyspnoea [Unknown]
